FAERS Safety Report 6828517-0 (Version None)
Quarter: 2010Q3

REPORT INFORMATION
  Report Type: 
  Country: None (occurrence: None)
  Receive Date: 20100708
  Receipt Date: 20100708
  Transmission Date: 20110219
  Serious: No
  Sender: FDA-Public Use
  Company Number: None

PATIENT
  Age: 61 Year
  Sex: Female
  Weight: 81.6475 kg

DRUGS (1)
  1. VECTICAL [Suspect]
     Indication: PSORIASIS
     Dosage: APPLY OINTMENT 2X DAILY TOP
     Route: 061
     Dates: start: 20100415, end: 20100601

REACTIONS (3)
  - ERYTHEMA [None]
  - PRURITUS [None]
  - SKIN HAEMORRHAGE [None]
